FAERS Safety Report 16773909 (Version 1)
Quarter: 2019Q3

REPORT INFORMATION
  Report Type: Spontaneous
  Country: CN (occurrence: CN)
  Receive Date: 20190904
  Receipt Date: 20190904
  Transmission Date: 20191005
  Serious: Yes (Other)
  Sender: FDA-Public Use
  Company Number: CN-BAXTER-2019BAX017099

PATIENT
  Age: 72 Year
  Sex: Male
  Weight: 43 kg

DRUGS (2)
  1. ENDOXAN [Suspect]
     Active Substance: CYCLOPHOSPHAMIDE
     Indication: MASS
     Dosage: CYCLOPHOSPHAMIDE 1.0 G + 0.9% NS 100ML
     Route: 041
     Dates: start: 20190806, end: 20190806
  2. 0.9% SODIUM CHLORIDE INJECTION [Suspect]
     Active Substance: SODIUM CHLORIDE
     Indication: MEDICATION DILUTION
     Dosage: CYCLOPHOSPHAMIDE 1.0 G + 0.9% NS 100ML
     Route: 041
     Dates: start: 20190806, end: 20190806

REACTIONS (2)
  - Pyrexia [Recovered/Resolved]
  - Chills [Recovered/Resolved]

NARRATIVE: CASE EVENT DATE: 20190806
